FAERS Safety Report 7810900-8 (Version None)
Quarter: 2011Q4

REPORT INFORMATION
  Report Type: 
  Country: None (occurrence: None)
  Receive Date: 20111013
  Receipt Date: 20111011
  Transmission Date: 20120403
  Serious: No
  Sender: FDA-Public Use
  Company Number: US-PFIZER INC-2011243017

PATIENT
  Age: 72 Year
  Sex: Female
  Weight: 108 kg

DRUGS (4)
  1. HUMULIN R [Concomitant]
     Dosage: 20 IU, 2X/DAY
  2. IBUPROFEN (ADVIL) [Suspect]
     Dosage: 200 MG, AS NEEDED
     Route: 048
     Dates: end: 20111001
  3. IBUPROFEN (ADVIL) [Suspect]
     Indication: EYE OPERATION
     Dosage: 200 MG ONE OR TWO CAPSULES AS NEEDED
     Route: 048
     Dates: start: 20111007
  4. HUMULIN N [Concomitant]
     Dosage: 70 IU, 2X/DAY

REACTIONS (1)
  - COUGH [None]
